FAERS Safety Report 9420952 (Version 2)
Quarter: 2013Q4

REPORT INFORMATION
  Report Type: Spontaneous
  Country: US (occurrence: US)
  Receive Date: 20130725
  Receipt Date: 20131015
  Transmission Date: 20140711
  Serious: Yes (Hospitalization)
  Sender: FDA-Public Use
  Company Number: PHEH2013US015621

PATIENT
  Age: 59 Year
  Sex: Male
  Weight: 99.8 kg

DRUGS (33)
  1. FLORINEF [Concomitant]
     Dosage: 1 MG, UNK
  2. AMLODIPINE [Concomitant]
     Indication: HYPERTENSION
     Dosage: 5 MG, BID
     Route: 048
  3. FLUCONAZOLE [Concomitant]
     Dosage: 200 MG, UNK
  4. HUMALOG [Concomitant]
     Dosage: 10 IU, BREAKFAST DINE SQ
  5. HUMALOG [Concomitant]
     Dosage: 20 IU, LUNCH
  6. LANTUS [Concomitant]
     Dosage: 30 IU, QAM
  7. LANTUS [Concomitant]
     Dosage: 20 IU, HS
  8. BACTRIM [Concomitant]
  9. ZOLOFT [Concomitant]
     Dosage: 100 MG, QHS
  10. PREDNISONE [Concomitant]
     Dosage: 10 MG, QHS
  11. REGLAN [Concomitant]
     Dosage: 10 MG, UNK
  12. CLONIDINE [Concomitant]
     Dosage: 6.2 MG, TID
     Route: 048
  13. CARVEDILOL [Concomitant]
  14. AZITHROMYCIN [Concomitant]
     Dosage: 250 MG, TIW
     Route: 048
  15. ALBUTEROL [Concomitant]
  16. CALCIUM 600+VITAMIN D3 400 [Concomitant]
     Dosage: 6.25 MG, UNK
     Route: 048
  17. ACETYLSALICYLIC ACID [Concomitant]
     Dosage: 81 MG, QD
     Route: 048
  18. RITALIN [Concomitant]
     Dosage: 10 MG, BID
  19. CHOLECALCIFEROL [Concomitant]
     Dosage: 2000 U, QD
     Route: 048
  20. ZOSYN [Concomitant]
  21. PRAVACHOL [Concomitant]
  22. SYNTHROID [Concomitant]
     Dosage: 100 UG, UNK
  23. MAGNESIUM CHLORIDE [Concomitant]
     Dosage: 128 MG, BID
  24. ITRACONAZOLE [Concomitant]
     Dosage: 200 MG, BID
  25. COLACE [Concomitant]
     Dosage: 100 MG, BID
     Route: 048
  26. PEPCID [Concomitant]
     Dosage: 20 MG, QD
     Route: 048
  27. FERROUS SULFATE [Concomitant]
     Dosage: 325 MG, QHS
  28. FLUTICASONE [Concomitant]
  29. LASIX [Concomitant]
     Dosage: 50 MG, QD
  30. HEPARIN [Concomitant]
     Dosage: 5000 U, UNK
  31. MUCINEX [Concomitant]
     Dosage: 600 MG, BID
  32. NEORAL [Suspect]
     Indication: LUNG TRANSPLANT
     Dosage: 50 MG AM AND 75 MG PM
     Route: 048
  33. NEURONTIN [Concomitant]
     Dosage: 300 MG, UNK

REACTIONS (6)
  - Cardiac failure congestive [Unknown]
  - Asthenia [Unknown]
  - Lethargy [Unknown]
  - Fall [Unknown]
  - Renal failure acute [Unknown]
  - Hyperkalaemia [Recovered/Resolved]
